FAERS Safety Report 20822752 (Version 1)
Quarter: 2022Q2

REPORT INFORMATION
  Report Type: Spontaneous
  Country: US (occurrence: US)
  Receive Date: 20220512
  Receipt Date: 20220512
  Transmission Date: 20220721
  Serious: No
  Sender: FDA-Public Use
  Company Number: US-PFIZER INC-202200697809

PATIENT
  Age: 39 Year
  Sex: Female

DRUGS (6)
  1. IBRANCE [Suspect]
     Active Substance: PALBOCICLIB
     Indication: Breast cancer
     Dosage: 75 MG, CYCLIC (FOR 21 DAYS, THEN 7 DAYS OFF)
     Dates: start: 20220127
  2. IBRANCE [Suspect]
     Active Substance: PALBOCICLIB
     Indication: Metastases to lung
  3. IBRANCE [Suspect]
     Active Substance: PALBOCICLIB
     Indication: Metastases to liver
  4. IBRANCE [Suspect]
     Active Substance: PALBOCICLIB
     Indication: Cholangiocarcinoma
  5. HERCEPTIN [Concomitant]
     Active Substance: TRASTUZUMAB
  6. VITAMIN D3 [Concomitant]
     Active Substance: CHOLECALCIFEROL

REACTIONS (1)
  - Neoplasm progression [Not Recovered/Not Resolved]
